FAERS Safety Report 16402665 (Version 3)
Quarter: 2019Q3

REPORT INFORMATION
  Report Type: Spontaneous
  Country: US (occurrence: US)
  Receive Date: 20190607
  Receipt Date: 20190706
  Transmission Date: 20191004
  Serious: No
  Sender: FDA-Public Use
  Company Number: US-UNITED THERAPEUTICS-UNT-2019-009791

PATIENT
  Age: 73 Year
  Sex: Male

DRUGS (1)
  1. ORENITRAM [Suspect]
     Active Substance: TREPROSTINIL
     Indication: PULMONARY ARTERIAL HYPERTENSION
     Dosage: 1.25 MG, TID
     Route: 048
     Dates: start: 20190425

REACTIONS (6)
  - Headache [Unknown]
  - Inflammation [Not Recovered/Not Resolved]
  - Gastrooesophageal reflux disease [Recovered/Resolved]
  - Intracardiac pressure increased [Unknown]
  - Dizziness [Unknown]
  - Pulmonary arterial pressure increased [Not Recovered/Not Resolved]

NARRATIVE: CASE EVENT DATE: 20190528
